FAERS Safety Report 13637435 (Version 1)
Quarter: 2017Q2

REPORT INFORMATION
  Report Type: Spontaneous
  Country: US (occurrence: US)
  Receive Date: 20170608
  Receipt Date: 20170608
  Transmission Date: 20170830
  Serious: No
  Sender: FDA-Public Use
  Company Number: None

PATIENT
  Age: 54 Year
  Sex: Female

DRUGS (1)
  1. HUMIRA [Suspect]
     Active Substance: ADALIMUMAB
     Indication: RHEUMATOID ARTHRITIS
     Dosage: 40 MG PFS INJECT 1 SYRINGE SUBQ EVERY OTHER WEEK
     Route: 058
     Dates: start: 20160213, end: 20170606

REACTIONS (2)
  - Therapy cessation [None]
  - Sepsis [None]

NARRATIVE: CASE EVENT DATE: 20170529
